FAERS Safety Report 4734063-0 (Version None)
Quarter: 2005Q3

REPORT INFORMATION
  Report Type: 
  Country: None (occurrence: None)
  Receive Date: 20050803
  Receipt Date: 20050803
  Transmission Date: 20060218
  Serious: Yes (Other)
  Sender: FDA-Public Use
  Company Number: None

PATIENT
  Sex: Female

DRUGS (3)
  1. FENTANYL [Suspect]
     Indication: INTERVERTEBRAL DISC DEGENERATION
     Dosage: ONE Q 3 DAYS
     Dates: start: 20050401, end: 20050425
  2. OXYCODONE EXT REL [Concomitant]
  3. HYDROCOD/APAP [Concomitant]

REACTIONS (3)
  - DRUG INEFFECTIVE [None]
  - PHARMACEUTICAL PRODUCT COMPLAINT [None]
  - THERAPEUTIC RESPONSE UNEXPECTED WITH DRUG SUBSTITUTION [None]
